FAERS Safety Report 5630709-3 (Version None)
Quarter: 2008Q1

REPORT INFORMATION
  Report Type: 
  Country: None (occurrence: None)
  Receive Date: 20080219
  Receipt Date: 20080211
  Transmission Date: 20080703
  Serious: Yes (Hospitalization)
  Sender: FDA-Public Use
  Company Number: US-ELI_LILLY_AND_COMPANY-US200801006152

PATIENT
  Sex: Female
  Weight: 100.23 kg

DRUGS (15)
  1. BYETTA [Suspect]
     Dosage: 5 UG, 2/D
     Route: 058
     Dates: start: 20060101
  2. ACTOS [Concomitant]
     Dosage: 30 MG, DAILY (1/D)
     Route: 048
  3. ACTONEL [Concomitant]
     Indication: OSTEOPOROSIS
     Dosage: 35 MG, WEEKLY (1/W)
     Route: 048
     Dates: start: 20050101
  4. REBIF [Concomitant]
     Indication: MULTIPLE SCLEROSIS
     Dosage: 44 MG, 3/W
     Route: 058
     Dates: start: 19980101
  5. BETHANECHOL [Concomitant]
     Indication: URINARY RETENTION
     Dosage: 25 MG, DAILY (1/D)
     Route: 048
     Dates: start: 20050101
  6. ACCUPRIL [Concomitant]
     Indication: HYPERTENSION
     Dosage: 20 MG, DAILY (1/D)
     Route: 048
  7. ACCUPRIL [Concomitant]
     Dosage: 30 MG, DAILY (1/D)
     Route: 048
  8. FOLIC ACID [Concomitant]
     Indication: ROUTINE HEALTH MAINTENANCE
     Dosage: 1 MG, DAILY (1/D)
     Route: 048
  9. PRAVACHOL [Concomitant]
     Indication: BLOOD CHOLESTEROL
     Dosage: 40 MG, DAILY (1/D)
     Route: 048
     Dates: start: 20040101
  10. NITROFUR-C [Concomitant]
     Indication: URINARY TRACT INFECTION
     Dosage: 100 MG, DAILY (1/D)
     Route: 048
  11. PREDNISONE TAB [Concomitant]
     Indication: MULTIPLE SCLEROSIS
     Dosage: 5 MG, 3/W
     Route: 058
  12. METHOTREXATE [Concomitant]
     Indication: MULTIPLE SCLEROSIS
     Dosage: 7.5 MG, WEEKLY (1/W)
     Route: 048
     Dates: start: 19980101
  13. ASPIRIN [Concomitant]
     Indication: PROPHYLAXIS
     Dosage: 81 MG, DAILY (1/D)
     Route: 048
  14. CALCIUM WITH VITAMIN D /00944201/ [Concomitant]
     Indication: ROUTINE HEALTH MAINTENANCE
     Dosage: 1200 MG, DAILY (1/D)
     Route: 048
  15. CENTRUM SILVER [Concomitant]
     Indication: ROUTINE HEALTH MAINTENANCE
     Dosage: UNK, DAILY (1/D)
     Route: 048

REACTIONS (2)
  - ASTHENIA [None]
  - URINARY TRACT INFECTION [None]
